FAERS Safety Report 10189355 (Version 3)
Quarter: 2017Q3

REPORT INFORMATION
  Report Type: Spontaneous
  Country: US (occurrence: US)
  Receive Date: 20140522
  Receipt Date: 20170830
  Transmission Date: 20171127
  Serious: Yes (Death, Hospitalization, Other)
  Sender: FDA-Public Use
  Company Number: US-009507513-1405USA006466

PATIENT
  Sex: Female

DRUGS (2)
  1. FOSAMAX [Suspect]
     Active Substance: ALENDRONATE SODIUM
     Indication: OSTEOPOROSIS
     Dosage: 10 MG, UNK
     Route: 048
     Dates: start: 20000414, end: 200206
  2. FOSAMAX [Suspect]
     Active Substance: ALENDRONATE SODIUM
     Indication: OSTEOPOROSIS
     Dosage: 70 MG, QW
     Route: 048
     Dates: start: 200206, end: 200711

REACTIONS (10)
  - Anaemia [Unknown]
  - Musculoskeletal discomfort [Unknown]
  - Cardiac murmur [Unknown]
  - Arthralgia [Unknown]
  - Dementia [Fatal]
  - Supraventricular extrasystoles [Unknown]
  - Pathological fracture [Unknown]
  - Fall [Unknown]
  - Interstitial lung disease [Unknown]
  - Weight increased [Unknown]

NARRATIVE: CASE EVENT DATE: 20071113
